FAERS Safety Report 8383480-9 (Version None)
Quarter: 2012Q1

REPORT INFORMATION
  Report Type: 
  Country: None (occurrence: None)
  Receive Date: 20120323
  Receipt Date: 20110404
  Transmission Date: 20120608
  Serious: Yes (Hospitalization)
  Sender: FDA-Public Use
  Company Number: 163-21880-11032523

PATIENT
  Age: 54 Year
  Sex: Female

DRUGS (6)
  1. VALTREX [Concomitant]
  2. REVLIMID [Suspect]
     Indication: CHRONIC LYMPHOCYTIC LEUKAEMIA
     Dosage: 5 MG, 3 WEEKS ON/ 1 WEEK OFF, PO 10 MG, 1 IN 1 D, PO 5 MG, 3 WEEKS ON 1 WEEK OFF, PO
     Route: 048
     Dates: start: 20090815, end: 20090101
  3. REVLIMID [Suspect]
     Indication: CHRONIC LYMPHOCYTIC LEUKAEMIA
     Dosage: 5 MG, 3 WEEKS ON/ 1 WEEK OFF, PO 10 MG, 1 IN 1 D, PO 5 MG, 3 WEEKS ON 1 WEEK OFF, PO
     Route: 048
     Dates: start: 20091101, end: 20101129
  4. REVLIMID [Suspect]
     Indication: CHRONIC LYMPHOCYTIC LEUKAEMIA
     Dosage: 5 MG, 3 WEEKS ON/ 1 WEEK OFF, PO 10 MG, 1 IN 1 D, PO 5 MG, 3 WEEKS ON 1 WEEK OFF, PO
     Route: 048
     Dates: start: 20110102
  5. REVLIMID [Suspect]
     Indication: CHRONIC LYMPHOCYTIC LEUKAEMIA
     Dosage: 5 MG, 3 WEEKS ON/ 1 WEEK OFF, PO 10 MG, 1 IN 1 D, PO 5 MG, 3 WEEKS ON 1 WEEK OFF, PO
     Route: 048
     Dates: start: 20090901, end: 20090101
  6. LEVOTHYROXINE SODIUM [Concomitant]

REACTIONS (1)
  - HERPES ZOSTER [None]
